FAERS Safety Report 25258626 (Version 4)
Quarter: 2025Q3

REPORT INFORMATION
  Report Type: Spontaneous
  Country: US (occurrence: US)
  Receive Date: 20250501
  Receipt Date: 20250811
  Transmission Date: 20251021
  Serious: No
  Sender: BIOGEN
  Company Number: US-BIOGEN-2025BI01306738

PATIENT
  Sex: Female

DRUGS (3)
  1. VUMERITY [Suspect]
     Active Substance: DIROXIMEL FUMARATE
     Indication: Multiple sclerosis
     Route: 050
     Dates: start: 20250313, end: 20250401
  2. VUMERITY [Suspect]
     Active Substance: DIROXIMEL FUMARATE
     Route: 050
     Dates: start: 20250402, end: 202505
  3. VUMERITY [Suspect]
     Active Substance: DIROXIMEL FUMARATE
     Dosage: TAKING ONLY 2 PILLS A DAY INSTEAD OF THE 4 OF?VUMERITY
     Route: 050

REACTIONS (7)
  - Prescribed underdose [Not Recovered/Not Resolved]
  - Intentional product misuse [Unknown]
  - Product dose omission in error [Unknown]
  - Cough [Not Recovered/Not Resolved]
  - Frequent bowel movements [Recovered/Resolved]
  - Urinary tract infection [Recovered/Resolved]
  - Diarrhoea [Recovered/Resolved]

NARRATIVE: CASE EVENT DATE: 20250101
